FAERS Safety Report 14777052 (Version 4)
Quarter: 2018Q3

REPORT INFORMATION
  Report Type: Report from Study
  Country: US (occurrence: US)
  Receive Date: 20180419
  Receipt Date: 20180813
  Transmission Date: 20181010
  Serious: Yes (Hospitalization)
  Sender: FDA-Public Use
  Company Number: US-GILEAD-2018-0333393

PATIENT
  Age: 59 Year
  Sex: Female
  Weight: 83.45 kg

DRUGS (6)
  1. AMBRISENTAN [Suspect]
     Active Substance: AMBRISENTAN
     Indication: PULMONARY ARTERIAL HYPERTENSION
     Dosage: 5 MG, QD
     Route: 065
     Dates: start: 20180109
  2. AMBRISENTAN [Suspect]
     Active Substance: AMBRISENTAN
     Dosage: 10 MG, QD
     Route: 065
     Dates: start: 20180222
  3. REMODULIN [Suspect]
     Active Substance: TREPROSTINIL
     Dosage: 0.016 UG/KG, UNK
     Route: 041
  4. REMODULIN [Suspect]
     Active Substance: TREPROSTINIL
     Dosage: 0.01 UG/KG, UNK
     Route: 041
  5. REMODULIN [Suspect]
     Active Substance: TREPROSTINIL
     Indication: PULMONARY ARTERIAL HYPERTENSION
     Dosage: 0.006 UG/KG, UNK
     Route: 041
     Dates: start: 20180201
  6. ADCIRCA [Concomitant]
     Active Substance: TADALAFIL

REACTIONS (3)
  - Blood potassium decreased [Unknown]
  - Diarrhoea [Not Recovered/Not Resolved]
  - Device dislocation [Unknown]

NARRATIVE: CASE EVENT DATE: 2018
